FAERS Safety Report 14474861 (Version 1)
Quarter: 2018Q1

REPORT INFORMATION
  Report Type: Spontaneous
  Country: US (occurrence: US)
  Receive Date: 20180201
  Receipt Date: 20180201
  Transmission Date: 20180509
  Serious: No
  Sender: FDA-Public Use
  Company Number: US-LUNDBECK-DKLU2039231

PATIENT
  Age: 82 Year
  Sex: Male

DRUGS (2)
  1. NORTHERA [Suspect]
     Active Substance: DROXIDOPA
     Dosage: LUNCHTIME DOSE AND LAST DOSE
     Route: 048
     Dates: end: 20171024
  2. NORTHERA [Suspect]
     Active Substance: DROXIDOPA
     Indication: PRODUCT USED FOR UNKNOWN INDICATION
     Dosage: B AND COMPLETE
     Route: 048
     Dates: start: 20171013, end: 20171024

REACTIONS (2)
  - Confusional state [Unknown]
  - Rash [Unknown]

NARRATIVE: CASE EVENT DATE: 20171024
